FAERS Safety Report 4512268-1 (Version None)
Quarter: 2004Q4

REPORT INFORMATION
  Report Type: 
  Country: None (occurrence: None)
  Receive Date: 20041129
  Receipt Date: 20031103
  Transmission Date: 20050328
  Serious: Yes (Other)
  Sender: FDA-Public Use
  Company Number: US-GLAXOSMITHKLINE-A0439714A

PATIENT
  Age: 44 Year
  Sex: Male

DRUGS (11)
  1. AVANDIA [Suspect]
     Dosage: 4MG PER DAY
     Route: 048
     Dates: start: 20000427
  2. CLONIDINE [Concomitant]
     Indication: DRUG USE FOR UNKNOWN INDICATION
     Dosage: .3MG TWICE PER DAY
  3. SPIRONOLACTONE [Concomitant]
     Indication: DRUG USE FOR UNKNOWN INDICATION
     Dosage: 25MG TWICE PER DAY
  4. POTASSIUM [Concomitant]
     Indication: DRUG USE FOR UNKNOWN INDICATION
  5. CAPTOPRIL [Concomitant]
     Indication: DRUG USE FOR UNKNOWN INDICATION
     Dosage: 50MG TWICE PER DAY
  6. ASPIRIN [Concomitant]
     Indication: DRUG USE FOR UNKNOWN INDICATION
     Dosage: 325MG PER DAY
  7. NIFEDIPINE [Concomitant]
     Indication: DRUG USE FOR UNKNOWN INDICATION
     Dosage: 90MG PER DAY
  8. HYDRALAZINE [Concomitant]
     Indication: DRUG USE FOR UNKNOWN INDICATION
     Dosage: 25MG TWICE PER DAY
  9. AMARYL [Concomitant]
     Indication: DRUG USE FOR UNKNOWN INDICATION
     Dosage: 2MG PER DAY
  10. COZAAR [Concomitant]
     Indication: DRUG USE FOR UNKNOWN INDICATION
  11. CELEBREX [Concomitant]

REACTIONS (19)
  - CARDIAC DISORDER [None]
  - CARDIOMEGALY [None]
  - CEREBRAL HAEMORRHAGE [None]
  - CHEST PAIN [None]
  - FEELING HOT [None]
  - FLUID OVERLOAD [None]
  - FLUID RETENTION [None]
  - HAEMATOCRIT DECREASED [None]
  - HAEMOGLOBIN DECREASED [None]
  - HEPATIC FAILURE [None]
  - HEPATOCELLULAR DAMAGE [None]
  - HYPERGLYCAEMIA [None]
  - INTRACRANIAL ANEURYSM [None]
  - INTRAVENTRICULAR HAEMORRHAGE [None]
  - MYOCARDIAL INFARCTION [None]
  - PYREXIA [None]
  - QUADRIPLEGIA [None]
  - SEPSIS [None]
  - URINARY TRACT INFECTION [None]
